FAERS Safety Report 24958622 (Version 1)
Quarter: 2025Q1

REPORT INFORMATION
  Report Type: Spontaneous
  Country: US (occurrence: US)
  Receive Date: 20250212
  Receipt Date: 20250212
  Transmission Date: 20250408
  Serious: Yes (Other)
  Sender: SANDOZ
  Company Number: US-SANDOZ-SDZ2025US007532

PATIENT
  Sex: Male

DRUGS (19)
  1. AZITHROMYCIN [Suspect]
     Active Substance: AZITHROMYCIN
     Indication: Mycobacterium abscessus infection
     Route: 065
     Dates: start: 20240624, end: 20240819
  2. AZITHROMYCIN [Suspect]
     Active Substance: AZITHROMYCIN
     Route: 065
     Dates: start: 20240820, end: 20240910
  3. AZITHROMYCIN [Suspect]
     Active Substance: AZITHROMYCIN
     Route: 065
     Dates: start: 20240911, end: 20241009
  4. AZITHROMYCIN [Suspect]
     Active Substance: AZITHROMYCIN
     Route: 065
     Dates: start: 20241010
  5. AMIKACIN [Suspect]
     Active Substance: AMIKACIN
     Indication: Mycobacterium abscessus infection
     Route: 042
     Dates: start: 20240624, end: 20240819
  6. AMIKACIN [Suspect]
     Active Substance: AMIKACIN
     Route: 055
     Dates: start: 20241010
  7. CEFOXITIN [Suspect]
     Active Substance: CEFOXITIN SODIUM
     Indication: Mycobacterium abscessus infection
     Route: 042
     Dates: start: 20240820, end: 20240910
  8. OMADACYCLINE [Suspect]
     Active Substance: OMADACYCLINE
     Indication: Mycobacterium abscessus infection
     Route: 065
     Dates: start: 20240624, end: 20240819
  9. OMADACYCLINE [Suspect]
     Active Substance: OMADACYCLINE
     Route: 065
     Dates: start: 20240820, end: 20240910
  10. OMADACYCLINE [Suspect]
     Active Substance: OMADACYCLINE
     Route: 065
     Dates: start: 20240911, end: 20241009
  11. OMADACYCLINE [Suspect]
     Active Substance: OMADACYCLINE
     Route: 065
     Dates: start: 20241010
  12. CIPROFLOXACIN [Concomitant]
     Active Substance: CIPROFLOXACIN
     Indication: Mycobacterium abscessus infection
     Route: 065
  13. CLARITHROMYCIN [Concomitant]
     Active Substance: CLARITHROMYCIN
     Indication: Mycobacterium abscessus infection
     Route: 065
  14. DOXYCYCLINE [Concomitant]
     Active Substance: DOXYCYCLINE
     Indication: Mycobacterium abscessus infection
     Route: 065
  15. IMIPENEM [Concomitant]
     Active Substance: IMIPENEM
     Indication: Mycobacterium abscessus infection
     Route: 065
  16. LINEZOLID [Concomitant]
     Active Substance: LINEZOLID
     Indication: Mycobacterium abscessus infection
     Route: 065
  17. MOXIFLOXACIN [Concomitant]
     Active Substance: MOXIFLOXACIN
     Indication: Mycobacterium abscessus infection
     Route: 065
  18. SULFAMETHOXAZOLE AND TRIMETHOPRIM [Concomitant]
     Active Substance: SULFAMETHOXAZOLE\TRIMETHOPRIM
     Indication: Mycobacterium abscessus infection
     Route: 065
  19. TIGECYCLINE [Concomitant]
     Active Substance: TIGECYCLINE
     Indication: Mycobacterium abscessus infection
     Route: 065

REACTIONS (4)
  - Lung infiltration [Unknown]
  - Acute kidney injury [Unknown]
  - Diarrhoea [Unknown]
  - Drug resistance [Unknown]
